FAERS Safety Report 23213086 (Version 1)
Quarter: 2023Q4

REPORT INFORMATION
  Report Type: Other
  Country: None (occurrence: US)
  Receive Date: 20231121
  Receipt Date: 20231121
  Transmission Date: 20240109
  Serious: Yes (Life-Threatening, Hospitalization, Other)
  Sender: FDA-Public Use
  Company Number: US-CorePharma LLC-2148537

PATIENT
  Age: 8 Decade
  Sex: Female

DRUGS (5)
  1. LISINOPRIL [Suspect]
     Active Substance: LISINOPRIL
     Indication: Hypertension
     Route: 065
  2. CELECOXIB [Interacting]
     Active Substance: CELECOXIB
     Route: 065
  3. ASPIRIN [Interacting]
     Active Substance: ASPIRIN
     Route: 065
  4. TRAMADOL [Concomitant]
     Active Substance: TRAMADOL\TRAMADOL HYDROCHLORIDE
     Route: 065
  5. TIZANIDINE [Concomitant]
     Active Substance: TIZANIDINE
     Route: 065

REACTIONS (2)
  - Angioedema [Unknown]
  - Drug interaction [Unknown]
